FAERS Safety Report 6749385 (Version 29)
Quarter: 2013Q4

REPORT INFORMATION
  Report Type: Spontaneous
  Country: US (occurrence: US)
  Receive Date: 20080905
  Receipt Date: 20131008
  Transmission Date: 20140711
  Serious: Yes (Hospitalization, Other)
  Sender: FDA-Public Use
  Company Number: PHEH2008US07606

PATIENT
  Age: 73 Year
  Sex: Female
  Weight: 70.9 kg

DRUGS (45)
  1. AREDIA [Suspect]
     Indication: PLASMA CELL MYELOMA
     Dosage: 90 MG, QMO
     Route: 042
     Dates: start: 20000914
  2. AREDIA [Suspect]
     Dosage: QMO
     Route: 042
     Dates: start: 2002
  3. ZOMETA [Suspect]
     Indication: PLASMA CELL MYELOMA
     Dosage: 4 MG,
     Dates: end: 200505
  4. ZOMETA [Suspect]
     Dates: start: 200607
  5. OXYCONTIN [Concomitant]
     Indication: PAIN
  6. VICODIN [Concomitant]
  7. RYTHMOL ^KNOLL^ [Concomitant]
     Dosage: 50 MG, 2QD
  8. IRON [Concomitant]
  9. VIOXX [Concomitant]
     Dosage: 2 QD
  10. HYDROCODONE [Concomitant]
     Indication: PAIN
  11. INTERFERON [Concomitant]
     Indication: PLASMA CELL MYELOMA
  12. NEURONTIN [Concomitant]
  13. HEMODIALYSIS [Concomitant]
     Indication: PLASMA CELL MYELOMA
  14. ASPIRIN ^BAYER^ [Concomitant]
  15. PAMELOR [Concomitant]
     Indication: LIMB DISCOMFORT
  16. EPOGEN [Concomitant]
  17. RENAGEL [Concomitant]
  18. RENA-VITE [Concomitant]
  19. FUROSEMIDE [Concomitant]
  20. POTASSIUM [Concomitant]
  21. ARANESP [Concomitant]
  22. DEXAMETHASONE [Concomitant]
  23. BACTRIM [Concomitant]
  24. THALIDOMIDE [Concomitant]
  25. ZOFRAN [Concomitant]
     Dosage: 8 MG, UNK
  26. MVI [Concomitant]
  27. ASA [Concomitant]
     Dosage: 81 MG, QD
     Route: 048
  28. FLEXERIL [Concomitant]
     Dosage: 5 MG, Q8H PRN
     Route: 048
  29. TYLENOL [Concomitant]
     Dosage: 1 DF, Q6H PRN
     Route: 048
  30. NEPHRO-VITE [Concomitant]
     Indication: RENAL FAILURE
  31. ZEMPLAR [Concomitant]
  32. SODIUM BICARBONATE [Concomitant]
     Dosage: 650 MG, TID
  33. PYRIDOXINE [Concomitant]
     Dosage: 50 MG, QD
  34. K-DUR [Concomitant]
     Dosage: 10 MEQ, QD
  35. ZOVIRAX [Concomitant]
     Dosage: 200 MG, Q48H
     Route: 048
  36. NEUPOGEN [Concomitant]
     Dosage: 300 UG, UNK
  37. IMODIUM [Concomitant]
     Dosage: 2 MG, Q6H PRN
     Route: 048
  38. PEPCID [Concomitant]
     Dosage: 20 MG, QD
     Route: 048
  39. LASIX [Concomitant]
  40. NYSTATIN [Concomitant]
  41. CEFEPIME [Concomitant]
     Dosage: 1 G, Q12H
     Route: 042
  42. PROTONIX ^PHARMACIA^ [Concomitant]
     Dosage: 40 MG, QD
     Route: 048
  43. ALBUTEROL [Concomitant]
  44. ATIVAN [Concomitant]
     Route: 042
  45. HECTOROL [Concomitant]

REACTIONS (119)
  - Lymphadenopathy [Recovered/Resolved]
  - Diarrhoea [Unknown]
  - Vomiting [Unknown]
  - Injury [Unknown]
  - Pain [Unknown]
  - Infection [Unknown]
  - Anxiety [Unknown]
  - Physical disability [Unknown]
  - Body dysmorphic disorder [Unknown]
  - Neuropathy peripheral [Unknown]
  - Nephrotic syndrome [Unknown]
  - Cellulitis [Unknown]
  - Cerebrovascular disorder [Unknown]
  - Renal failure chronic [Unknown]
  - Blood creatinine increased [Unknown]
  - Hypertension [Unknown]
  - Spondylolysis [Unknown]
  - Hepatic steatosis [Unknown]
  - Diverticulum [Unknown]
  - Dyspnoea [Unknown]
  - Oedema peripheral [Unknown]
  - Dizziness [Unknown]
  - Otitis media [Unknown]
  - Nephrosclerosis [Unknown]
  - Electrolyte imbalance [Unknown]
  - Thrombocytopenia [Unknown]
  - Osteosclerosis [Unknown]
  - Spondyloarthropathy [Unknown]
  - Ligament disorder [Unknown]
  - Cough [Unknown]
  - Oropharyngeal pain [Unknown]
  - Sinus congestion [Unknown]
  - Haemangioma of bone [Unknown]
  - Hypogammaglobulinaemia [Unknown]
  - Immunoglobulins decreased [Unknown]
  - Toothache [Unknown]
  - Sepsis [Unknown]
  - Impaired gastric emptying [Unknown]
  - Plasma cell myeloma [Unknown]
  - Intervertebral disc space narrowing [Unknown]
  - Bone marrow oedema [Unknown]
  - Delirium [Unknown]
  - Blood parathyroid hormone increased [Unknown]
  - Blood albumin decreased [Unknown]
  - Blood bicarbonate decreased [Unknown]
  - Blood phosphorus increased [Unknown]
  - Mean cell haemoglobin increased [Unknown]
  - Mean cell haemoglobin concentration decreased [Unknown]
  - Mean cell volume increased [Unknown]
  - Mucosal inflammation [Unknown]
  - Neutropenia [Unknown]
  - Bone abscess [Unknown]
  - Anaemia macrocytic [Unknown]
  - Ligament sprain [Unknown]
  - Hypokalaemia [Unknown]
  - Escherichia infection [Unknown]
  - Lymphadenopathy mediastinal [Unknown]
  - Interstitial lung disease [Unknown]
  - Pleural effusion [Unknown]
  - Carotid artery stenosis [Unknown]
  - Hyperphosphataemia [Unknown]
  - Cardiomegaly [Unknown]
  - Mitral valve calcification [Unknown]
  - Spinal osteoarthritis [Unknown]
  - Confusional state [Unknown]
  - Cerebral ventricle dilatation [Unknown]
  - Vascular calcification [Unknown]
  - Tinnitus [Unknown]
  - Spondylolisthesis [Unknown]
  - Mass [Unknown]
  - Bronchitis [Unknown]
  - Thyroid disorder [Unknown]
  - Lip disorder [Unknown]
  - Urinary incontinence [Unknown]
  - Aortic dilatation [Unknown]
  - Kyphosis [Unknown]
  - Hyperparathyroidism secondary [Unknown]
  - Exostosis [Unknown]
  - Mental status changes [Unknown]
  - Kwashiorkor [Unknown]
  - Intervertebral disc protrusion [Recovered/Resolved]
  - Fall [Recovered/Resolved]
  - Joint injury [Recovered/Resolved]
  - Back pain [Recovered/Resolved]
  - Arthralgia [Recovered/Resolved]
  - Muscular weakness [Recovered/Resolved]
  - Radicular pain [Recovered/Resolved]
  - Tooth disorder [Unknown]
  - Impaired healing [Unknown]
  - Osteonecrosis of jaw [Unknown]
  - Oral papule [Unknown]
  - Oral pain [Unknown]
  - Bone disorder [Unknown]
  - Osteitis [Unknown]
  - Pain in jaw [Unknown]
  - Back disorder [Unknown]
  - Primary sequestrum [Unknown]
  - Salivary gland disorder [Unknown]
  - Periodontal disease [Unknown]
  - Osteolysis [Unknown]
  - Abscess oral [Unknown]
  - Limb discomfort [Unknown]
  - Hypoaesthesia [Unknown]
  - Plasmacytosis [Unknown]
  - Lumbar spinal stenosis [Unknown]
  - Dehydration [Unknown]
  - Pancytopenia [Unknown]
  - Hypocalcaemia [Unknown]
  - Osteoporosis [Unknown]
  - Oedema [Unknown]
  - Osteopenia [Unknown]
  - Renal failure [Unknown]
  - Arteriovenous fistula [Unknown]
  - Proteinuria [Unknown]
  - Osteomyelitis [Unknown]
  - Glaucoma [Unknown]
  - Fistula [Unknown]
  - Periodontitis [Unknown]
  - Sialoadenitis [Unknown]
